FAERS Safety Report 4564904-1 (Version None)
Quarter: 2005Q1

REPORT INFORMATION
  Report Type: 
  Country: None (occurrence: None)
  Receive Date: 20050126
  Receipt Date: 20050103
  Transmission Date: 20050727
  Serious: Yes (Hospitalization)
  Sender: FDA-Public Use
  Company Number: CEL-2005-00023-SLO

PATIENT
  Age: 13 Year
  Sex: Female
  Weight: 45 kg

DRUGS (4)
  1. DIPENTUM [Suspect]
     Indication: COLITIS ULCERATIVE
     Dosage: 1.5 G, 1/D, PO
     Route: 048
     Dates: start: 20030301, end: 20041101
  2. COLIFOAM (HYDROCORTISONE ACETATE) [Concomitant]
  3. MUTAFLOR (ESCHERICHIA COLI) [Concomitant]
  4. PREDNISOLONE [Concomitant]

REACTIONS (1)
  - ARTHRITIS [None]
